FAERS Safety Report 5529027-3 (Version None)
Quarter: 2007Q4

REPORT INFORMATION
  Report Type: 
  Country: None (occurrence: None)
  Receive Date: 20071119
  Receipt Date: 20071015
  Transmission Date: 20080405
  Serious: No
  Sender: FDA-Public Use
  Company Number: TPA2007A02117

PATIENT
  Age: 80 Year
  Sex: Female
  Weight: 73.4827 kg

DRUGS (4)
  1. ROZEREM [Suspect]
     Indication: INSOMNIA
     Dosage: 8 MG, QHS, PER ORAL; 8 MG, QHS, PER ORAL
     Route: 048
     Dates: start: 20070801, end: 20070801
  2. ROZEREM [Suspect]
     Indication: INSOMNIA
     Dosage: 8 MG, QHS, PER ORAL; 8 MG, QHS, PER ORAL
     Route: 048
     Dates: start: 20070901, end: 20070901
  3. GLIPIZIDE [Concomitant]
  4. LEVOTHYROXINE (LEVOTHYROXINE) (TABLETS) [Concomitant]

REACTIONS (1)
  - MUSCLE SPASMS [None]
